FAERS Safety Report 7929588-0 (Version None)
Quarter: 2011Q4

REPORT INFORMATION
  Report Type: 
  Country: None (occurrence: None)
  Receive Date: 20111116
  Receipt Date: 20111101
  Transmission Date: 20120403
  Serious: Yes (Death, Hospitalization)
  Sender: FDA-Public Use
  Company Number: 2011PV000045

PATIENT
  Age: 70 Year
  Sex: Male

DRUGS (1)
  1. DEPOCYT [Suspect]
     Indication: CENTRAL NERVOUS SYSTEM LYMPHOMA
     Dosage: 50 MG;QM;INTH
     Route: 037
     Dates: start: 20101008, end: 20110224

REACTIONS (15)
  - MOTOR DYSFUNCTION [None]
  - CANDIDIASIS [None]
  - SOMNOLENCE [None]
  - CULTURE URINE POSITIVE [None]
  - TOXIC ENCEPHALOPATHY [None]
  - DELIRIUM [None]
  - URINARY INCONTINENCE [None]
  - BEDRIDDEN [None]
  - HEADACHE [None]
  - OXYGEN SATURATION DECREASED [None]
  - NUCLEAR MAGNETIC RESONANCE IMAGING BRAIN ABNORMAL [None]
  - FAECAL INCONTINENCE [None]
  - SENSORY LOSS [None]
  - CONFUSIONAL STATE [None]
  - MUSCLE SPASMS [None]
